FAERS Safety Report 21230366 (Version 2)
Quarter: 2023Q2

REPORT INFORMATION
  Report Type: Report from Study
  Country: US (occurrence: US)
  Receive Date: 20220818
  Receipt Date: 20230630
  Transmission Date: 20230722
  Serious: Yes (Other)
  Sender: FDA-Public Use
  Company Number: US-JAZZ-2022-US-026810

PATIENT
  Sex: Female
  Weight: 120.8 kg

DRUGS (1)
  1. EPIDIOLEX [Suspect]
     Active Substance: CANNABIDIOL
     Indication: Product used for unknown indication
     Dosage: 1 ML TWO TIMES A DAY FOR 15 DAYS THEN 2 ML TWO TIMES A DAY FOR 15 DAYS
     Route: 048

REACTIONS (2)
  - Seizure [Unknown]
  - Pruritus [Unknown]
